FAERS Safety Report 7244717-2 (Version None)
Quarter: 2011Q1

REPORT INFORMATION
  Report Type: 
  Country: None (occurrence: None)
  Receive Date: 20110126
  Receipt Date: 20110118
  Transmission Date: 20110831
  Serious: Yes (Hospitalization)
  Sender: FDA-Public Use
  Company Number: US-BIOGENIDEC-2011BI001353

PATIENT
  Age: 63 Year
  Sex: Male

DRUGS (3)
  1. AVONEX [Suspect]
     Route: 030
  2. DRUGS (NOS) [Concomitant]
  3. AVONEX [Suspect]
     Indication: MULTIPLE SCLEROSIS
     Route: 030
     Dates: start: 19960703, end: 20050613

REACTIONS (5)
  - SOMNOLENCE [None]
  - DEVICE RELATED INFECTION [None]
  - UROSEPSIS [None]
  - PNEUMONIA ASPIRATION [None]
  - CLOSTRIDIAL INFECTION [None]
